FAERS Safety Report 8523427-5 (Version None)
Quarter: 2012Q3

REPORT INFORMATION
  Report Type: 
  Country: None (occurrence: None)
  Receive Date: 20120713
  Receipt Date: 20120713
  Transmission Date: 20120928
  Serious: Yes (Hospitalization)
  Sender: FDA-Public Use
  Company Number: None

PATIENT
  Age: 87 Year
  Sex: Male
  Weight: 74.8 kg

DRUGS (2)
  1. NIFEDIPINE [Suspect]
     Dosage: 30 MG EVERY DAY PO
     Route: 048
     Dates: start: 20111217, end: 20120105
  2. ATENOLOL [Suspect]
     Dosage: 50 MG EVERY DAY PO
     Route: 048
     Dates: start: 20110729, end: 20110101

REACTIONS (2)
  - BRADYCARDIA [None]
  - SINUS ARRHYTHMIA [None]
